FAERS Safety Report 4297729-5 (Version None)
Quarter: 2004Q1

REPORT INFORMATION
  Report Type: 
  Country: None (occurrence: None)
  Receive Date: 20040213
  Receipt Date: 20040204
  Transmission Date: 20041129
  Serious: Yes (Hospitalization)
  Sender: FDA-Public Use
  Company Number: 2004001029

PATIENT
  Age: 71 Year
  Sex: Male
  Weight: 62 kg

DRUGS (5)
  1. ZITHROMAX [Suspect]
     Indication: LARYNGOPHARYNGITIS
     Dosage: 500 MG, ORAL
     Route: 048
     Dates: start: 20031224, end: 20031226
  2. PL GRAN. (CAFFEINE, SALICYLAMIDE, PARACETAMOL, PROMETHAZINE METHYLENE [Suspect]
     Indication: NASOPHARYNGITIS
     Dosage: 3 GRAM (TID), ORAL
     Route: 048
     Dates: start: 20031224, end: 20031226
  3. SERRAPEPTASE (SERRAPEPTASE) [Suspect]
     Indication: NASOPHARYNGITIS
     Dosage: (TID), ORAL
     Route: 048
     Dates: start: 20031224, end: 20031226
  4. PARACETAMOL (PARACETAMOL) [Suspect]
     Indication: TOOTHACHE
     Dosage: 600 MG (TID), ORAL
     Route: 048
     Dates: start: 20031226, end: 20031227
  5. DEXTROMETHORPHAN HYDROBROMIDE (DEXTROMETHORPHAN HYDROBROMIDE) [Concomitant]

REACTIONS (7)
  - ALANINE AMINOTRANSFERASE INCREASED [None]
  - ASPARTATE AMINOTRANSFERASE INCREASED [None]
  - DIVERTICULUM INTESTINAL HAEMORRHAGIC [None]
  - HAEMATOCHEZIA [None]
  - HAEMOGLOBIN DECREASED [None]
  - RED BLOOD CELL COUNT DECREASED [None]
  - TOOTHACHE [None]
